FAERS Safety Report 16530253 (Version 2)
Quarter: 2019Q4

REPORT INFORMATION
  Report Type: Report from Study
  Country: None (occurrence: IT)
  Receive Date: 20190704
  Receipt Date: 20191220
  Transmission Date: 20200122
  Serious: Yes (Hospitalization, Other)
  Sender: FDA-Public Use
  Company Number: IT-ABBVIE-19K-083-2842100-00

PATIENT
  Age: 75 Year
  Sex: Male

DRUGS (1)
  1. DUODOPA [Suspect]
     Active Substance: CARBIDOPA\LEVODOPA
     Indication: PARKINSON^S DISEASE
     Dosage: MD: 3+3??CR: 4,4??ED: 2
     Route: 050
     Dates: start: 20130319

REACTIONS (5)
  - Cholecystitis acute [Unknown]
  - Pneumonia [Unknown]
  - Weight decreased [Unknown]
  - Decubitus ulcer [Unknown]
  - Bedridden [Unknown]

NARRATIVE: CASE EVENT DATE: 201904
